FAERS Safety Report 18400671 (Version 1)
Quarter: 2020Q4

REPORT INFORMATION
  Report Type: Spontaneous
  Country: US (occurrence: US)
  Receive Date: 20201019
  Receipt Date: 20201019
  Transmission Date: 20210114
  Serious: Yes (Other)
  Sender: FDA-Public Use
  Company Number: US-BAUSCH-BL-2020-029818

PATIENT
  Sex: Female

DRUGS (1)
  1. RELISTOR [Suspect]
     Active Substance: METHYLNALTREXONE BROMIDE
     Indication: PRODUCT USED FOR UNKNOWN INDICATION
     Route: 065
     Dates: start: 20201006, end: 202010

REACTIONS (9)
  - Muscle spasms [Unknown]
  - Fatigue [Unknown]
  - Abdominal pain upper [Recovered/Resolved]
  - Haemorrhage [Unknown]
  - Hypersomnia [Unknown]
  - Vomiting [Recovered/Resolved]
  - Cold sweat [Unknown]
  - Pyrexia [Unknown]
  - Retching [Unknown]

NARRATIVE: CASE EVENT DATE: 202010
